FAERS Safety Report 17398671 (Version 1)
Quarter: 2020Q1

REPORT INFORMATION
  Report Type: Spontaneous
  Country: US (occurrence: US)
  Receive Date: 20200210
  Receipt Date: 20200210
  Transmission Date: 20200409
  Serious: No
  Sender: FDA-Public Use
  Company Number: US-VAYAPHARMA-2018-US-015914

PATIENT
  Age: 12 Year
  Sex: Female
  Weight: 32.66 kg

DRUGS (1)
  1. VAYARIN [Suspect]
     Active Substance: DOCONEXENT\ICOSAPENT\PHOSPHATIDYL SERINE
     Indication: ATTENTION DEFICIT/HYPERACTIVITY DISORDER
     Dosage: 2 CAPS ONCE DAILY, THEN CHANGED TO 1 CAP TWICE DAILY
     Route: 048
     Dates: start: 20180907, end: 20180917

REACTIONS (1)
  - Abdominal pain [Unknown]

NARRATIVE: CASE EVENT DATE: 20010908
